FAERS Safety Report 5441785-5 (Version None)
Quarter: 2007Q3

REPORT INFORMATION
  Report Type: 
  Country: None (occurrence: None)
  Receive Date: 20070904
  Receipt Date: 20070822
  Transmission Date: 20080115
  Serious: Yes (Death, Other)
  Sender: FDA-Public Use
  Company Number: US-AMGEN-STX238805

PATIENT
  Sex: Male

DRUGS (1)
  1. ENBREL [Suspect]
     Indication: PSORIASIS
     Route: 058
     Dates: start: 20031001, end: 20070802

REACTIONS (5)
  - AORTIC STENOSIS [None]
  - ARRHYTHMIA [None]
  - MYOCARDIAL INFARCTION [None]
  - PROSTATE CANCER [None]
  - VENTRICULAR FIBRILLATION [None]
